FAERS Safety Report 21068763 (Version 4)
Quarter: 2022Q4

REPORT INFORMATION
  Report Type: Report from Study
  Country: US (occurrence: US)
  Receive Date: 20220712
  Receipt Date: 20221010
  Transmission Date: 20230113
  Serious: Yes (Hospitalization)
  Sender: FDA-Public Use
  Company Number: US-EXELIXIS-CABO-22053802

PATIENT
  Age: 59 Year
  Sex: Male
  Weight: 76.825 kg

DRUGS (3)
  1. CABOMETYX [Suspect]
     Active Substance: CABOZANTINIB S-MALATE
     Indication: Renal cancer
     Dosage: 40 MG, QD
     Route: 048
     Dates: start: 20220615, end: 202206
  2. CABOMETYX [Suspect]
     Active Substance: CABOZANTINIB S-MALATE
     Dosage: 40 MG, QD
     Route: 048
     Dates: start: 20220622
  3. DEXAMETHASONE [Concomitant]
     Active Substance: DEXAMETHASONE
     Dosage: UNK

REACTIONS (9)
  - Pyrexia [Unknown]
  - Fatigue [Unknown]
  - Nocturia [Unknown]
  - Liver disorder [Unknown]
  - Dry mouth [Unknown]
  - Sleep disorder [Unknown]
  - Brain neoplasm [Unknown]
  - Aphonia [Unknown]
  - Dry throat [Unknown]

NARRATIVE: CASE EVENT DATE: 20220616
